FAERS Safety Report 9841556 (Version 1)
Quarter: 2013Q4

REPORT INFORMATION
  Report Type: Spontaneous
  Country: US (occurrence: None)
  Receive Date: 20131219
  Receipt Date: 20131219
  Transmission Date: 20140711
  Serious: Yes (Other)
  Sender: FDA-Public Use
  Company Number: 163-20785-13053392

PATIENT
  Age: 78 Year
  Sex: Male
  Weight: 96.16 kg

DRUGS (4)
  1. THALOMID [Suspect]
     Indication: PLASMA CELL MYELOMA
     Route: 048
     Dates: start: 20130313
  2. VELCADE (BORTEZOMIB) [Concomitant]
  3. PROCRIT (ERYTHROPOIETIN) [Concomitant]
  4. BLOOD (BLOOD AND RELATED PRODUCTS) [Concomitant]

REACTIONS (2)
  - Full blood count decreased [None]
  - Plasma cell myeloma [None]
